FAERS Safety Report 6402662-6 (Version None)
Quarter: 2009Q4

REPORT INFORMATION
  Report Type: 
  Country: None (occurrence: None)
  Receive Date: 20091009
  Receipt Date: 20090930
  Transmission Date: 20100525
  Serious: Yes (Hospitalization, Disabling, Other)
  Sender: FDA-Public Use
  Company Number: ADR34272009

PATIENT
  Age: 83 Year
  Sex: Female

DRUGS (10)
  1. CIPROFLOXACIN [Suspect]
     Dosage: 1 G, ORAL
     Route: 048
     Dates: start: 20071228, end: 20080101
  2. ALENDRONIC ACID [Concomitant]
  3. CLARITHROMYCIN [Concomitant]
  4. IRON [Concomitant]
  5. LANSOPRAZOLE [Concomitant]
  6. QUININE [Concomitant]
  7. CITALOPRAM HYDROBROMIDE [Concomitant]
  8. ACETAMINOPHEN W/ CODEINE [Concomitant]
  9. FOLIC ACID [Concomitant]
  10. PREDNISOLONE [Concomitant]

REACTIONS (2)
  - MOBILITY DECREASED [None]
  - NEUROPATHY PERIPHERAL [None]
